FAERS Safety Report 4744990-6 (Version None)
Quarter: 2005Q3

REPORT INFORMATION
  Report Type: 
  Country: None (occurrence: None)
  Receive Date: 20050811
  Receipt Date: 20050520
  Transmission Date: 20060218
  Serious: Yes (Hospitalization)
  Sender: FDA-Public Use
  Company Number: 1825

PATIENT
  Age: 36 Year
  Sex: Female
  Weight: 66.2252 kg

DRUGS (5)
  1. AVINZA [Suspect]
     Indication: INTERVERTEBRAL DISC PROTRUSION
     Dosage: 60 MG BID PO
     Route: 048
     Dates: start: 20050221, end: 20050706
  2. AVINZA [Suspect]
     Indication: PAIN
     Dosage: 60 MG BID PO
     Route: 048
     Dates: start: 20050221, end: 20050706
  3. CLONAZEPAM [Concomitant]
  4. OXYCODONE AND ACETAMINOPHEN [Concomitant]
  5. SERTRALINE HCL [Concomitant]

REACTIONS (9)
  - AGITATION [None]
  - DRUG INEFFECTIVE [None]
  - DRUG TOLERANCE [None]
  - DRUG WITHDRAWAL SYNDROME [None]
  - INADEQUATE ANALGESIA [None]
  - INTENTIONAL SELF-INJURY [None]
  - LACERATION [None]
  - PANIC REACTION [None]
  - SUICIDE ATTEMPT [None]
